FAERS Safety Report 17187216 (Version 2)
Quarter: 2019Q4

REPORT INFORMATION
  Report Type: Report from Study
  Country: US (occurrence: US)
  Receive Date: 20191220
  Receipt Date: 20191225
  Transmission Date: 20200122
  Serious: Yes (Death, Other)
  Sender: FDA-Public Use
  Company Number: US-BAUSCH-BL-2019-065826

PATIENT
  Sex: Female

DRUGS (1)
  1. XIFAXAN [Suspect]
     Active Substance: RIFAXIMIN
     Indication: HEPATIC ENCEPHALOPATHY
     Dosage: START DATE: LITTLE LESS THAN A YEAR AGO
     Route: 048

REACTIONS (2)
  - Haemorrhagic stroke [Unknown]
  - Haemorrhage intracranial [Fatal]
